FAERS Safety Report 17005191 (Version 1)
Quarter: 2019Q4

REPORT INFORMATION
  Report Type: Spontaneous
  Country: FR (occurrence: FR)
  Receive Date: 20191107
  Receipt Date: 20191107
  Transmission Date: 20200122
  Serious: Yes (Other)
  Sender: FDA-Public Use
  Company Number: FR-JNJFOC-20191044566

PATIENT
  Age: 78 Year
  Sex: Male
  Weight: 88 kg

DRUGS (6)
  1. ERLEADA [Suspect]
     Active Substance: APALUTAMIDE
     Indication: PROSTATE CANCER
     Route: 048
     Dates: start: 20190520, end: 20190529
  2. INEXIUM 20 MG, COMPRIM  GASTRO-R SISTANT [Concomitant]
  3. SEROPLEX 10 MG, COMPRIM  PELLICUL  S CABLE [Concomitant]
  4. CARDENSIEL [Concomitant]
     Active Substance: BISOPROLOL FUMARATE
  5. ELIQUIS [Concomitant]
     Active Substance: APIXABAN
  6. COAPROVEL 300 MG/12,5 MG, COMPRIM  PELLICUL [Concomitant]

REACTIONS (2)
  - Eosinophilia [Recovering/Resolving]
  - Rash erythematous [Recovering/Resolving]

NARRATIVE: CASE EVENT DATE: 20190527
